FAERS Safety Report 5531955-X (Version None)
Quarter: 2007Q4

REPORT INFORMATION
  Report Type: 
  Country: None (occurrence: None)
  Receive Date: 20071203
  Receipt Date: 20071126
  Transmission Date: 20080405
  Serious: Yes (Other)
  Sender: FDA-Public Use
  Company Number: FR-ELI_LILLY_AND_COMPANY-FR200710001836

PATIENT
  Age: 44 Year
  Sex: Female
  Weight: 45 kg

DRUGS (2)
  1. GEMZAR [Suspect]
     Indication: PANCREATIC CARCINOMA
     Dosage: 1000 MG/M2, WEEKLY (1/W)
     Route: 042
     Dates: start: 20070628
  2. TARCEVA [Concomitant]
     Indication: PANCREATIC CARCINOMA
     Dosage: 100 MG, OTHER
     Route: 048
     Dates: start: 20070628

REACTIONS (1)
  - THROMBOCYTHAEMIA [None]
